FAERS Safety Report 15651536 (Version 2)
Quarter: 2019Q2

REPORT INFORMATION
  Report Type: Spontaneous
  Country: IN (occurrence: IN)
  Receive Date: 20181123
  Receipt Date: 20190425
  Transmission Date: 20190711
  Serious: Yes (Death, Hospitalization, Other)
  Sender: FDA-Public Use
  Company Number: IN-PFIZER INC-2018480728

PATIENT
  Age: 49 Year
  Sex: Male

DRUGS (3)
  1. SUTENT [Suspect]
     Active Substance: SUNITINIB MALATE
     Indication: METASTATIC RENAL CELL CARCINOMA
     Dosage: 50 MG, 1X/DAY
     Route: 048
     Dates: start: 20120222
  2. OMEZ [OMEPRAZOLE] [Concomitant]
     Active Substance: OMEPRAZOLE
     Dosage: 100 MG, UNK
  3. B-COMPLEX [AMINOBENZOIC ACID;CALCIUM PANTOTHENATE;CYANOCOBALAMIN;NICOT [Concomitant]
     Dosage: UNK

REACTIONS (8)
  - Coma [Unknown]
  - Anxiety [Unknown]
  - Blood creatine increased [Unknown]
  - Epistaxis [Unknown]
  - Death [Fatal]
  - Restlessness [Unknown]
  - Dyspnoea [Unknown]
  - Vomiting [Unknown]

NARRATIVE: CASE EVENT DATE: 20181025
